FAERS Safety Report 11422821 (Version 2)
Quarter: 2015Q3

REPORT INFORMATION
  Report Type: Spontaneous
  Country: IN (occurrence: IN)
  Receive Date: 20150827
  Receipt Date: 20150910
  Transmission Date: 20151125
  Serious: Yes (Hospitalization)
  Sender: FDA-Public Use
  Company Number: IN-AUROBINDO-AUR-APL-2015-07537

PATIENT
  Age: 32 Year
  Sex: Male

DRUGS (1)
  1. FLUOXETINE [Suspect]
     Active Substance: FLUOXETINE\FLUOXETINE HYDROCHLORIDE
     Indication: DEPRESSIVE SYMPTOM
     Dosage: 20 MG, DAILY
     Route: 065

REACTIONS (15)
  - Salivary hypersecretion [Recovering/Resolving]
  - Extrapyramidal disorder [Recovering/Resolving]
  - Restlessness [Recovering/Resolving]
  - Anxiety [Recovering/Resolving]
  - Dysarthria [Recovering/Resolving]
  - Dysgraphia [Recovering/Resolving]
  - Tremor [Recovered/Resolved]
  - Abasia [Recovering/Resolving]
  - Dyskinesia [Recovering/Resolving]
  - Trismus [Recovering/Resolving]
  - Bradykinesia [Recovered/Resolved]
  - Cogwheel rigidity [Recovered/Resolved]
  - Musculoskeletal stiffness [Recovering/Resolving]
  - Aphasia [Recovering/Resolving]
  - Dysphagia [Recovering/Resolving]
